FAERS Safety Report 4547245-8 (Version None)
Quarter: 2005Q1

REPORT INFORMATION
  Report Type: 
  Country: None (occurrence: None)
  Receive Date: 20050105
  Receipt Date: 20041223
  Transmission Date: 20050727
  Serious: Yes (Other)
  Sender: FDA-Public Use
  Company Number: 2004078290

PATIENT
  Sex: Female
  Weight: 74.8435 kg

DRUGS (11)
  1. ZOLOFT [Suspect]
     Indication: IRRITABILITY
     Dosage: 50 MG (50 MG , 1 IN 1 D), ORAL
     Route: 048
     Dates: start: 20040101
  2. CELEBREX [Suspect]
     Indication: ILL-DEFINED DISORDER
     Dosage: ORAL  ; A COUPLE OF YEARS AGO
     Route: 048
  3. DONEPEZIL HCL [Suspect]
     Indication: TRANSIENT ISCHAEMIC ATTACK
     Dosage: ORAL
     Route: 048
     Dates: start: 20041001
  4. BEXTRA [Suspect]
     Indication: ILL-DEFINED DISORDER
     Dates: start: 20040101
  5. ACETYLSALICYLIC ACID SRT [Concomitant]
  6. MONTELUKAST SODIUM [Concomitant]
  7. DESLORATADINE [Concomitant]
  8. TRIAMCINOLONE ACETONIDE [Concomitant]
  9. AZELASTINE HCL [Concomitant]
  10. COUGH AND COLD PREPARATIONS [Concomitant]
  11. ROFECOXIB [Concomitant]

REACTIONS (5)
  - HEADACHE [None]
  - IRRITABILITY [None]
  - MALAISE [None]
  - PRURITUS [None]
  - TRANSIENT ISCHAEMIC ATTACK [None]
